FAERS Safety Report 8450395-7 (Version None)
Quarter: 2012Q2

REPORT INFORMATION
  Report Type: 
  Country: None (occurrence: None)
  Receive Date: 20120620
  Receipt Date: 20120614
  Transmission Date: 20120825
  Serious: Yes (Other)
  Sender: FDA-Public Use
  Company Number: JP-SANOFI-AVENTIS-2012SA029061

PATIENT
  Age: 55 Year
  Sex: Male
  Weight: 69 kg

DRUGS (6)
  1. FLUOROURACIL [Suspect]
     Dosage: 10 COURSES
     Route: 065
  2. LEUCOVORIN CALCIUM [Suspect]
     Dosage: 10 COURSES
     Route: 065
  3. OXALIPLATIN [Suspect]
     Indication: RECTAL CANCER
     Dosage: 10 COURSES
     Route: 041
     Dates: start: 20070501
  4. LEUCOVORIN CALCIUM [Suspect]
     Indication: RECTAL CANCER
     Dosage: 10 COURSES
     Route: 065
     Dates: start: 20070501
  5. FLUOROURACIL [Suspect]
     Dosage: ON DAY 1 AND 2 AS CONTINOUS INFUSION
     Route: 042
  6. FLUOROURACIL [Suspect]
     Indication: RECTAL CANCER
     Dosage: BOLUS
     Route: 065
     Dates: start: 20070501

REACTIONS (3)
  - WHITE BLOOD CELL COUNT DECREASED [None]
  - BONE MARROW FAILURE [None]
  - GRANULOCYTE COUNT DECREASED [None]
